FAERS Safety Report 5530387-8 (Version None)
Quarter: 2007Q4

REPORT INFORMATION
  Report Type: 
  Country: None (occurrence: None)
  Receive Date: 20071130
  Receipt Date: 20071031
  Transmission Date: 20080405
  Serious: No
  Sender: FDA-Public Use
  Company Number: US-ABBOTT-07P-163-0423283-00

PATIENT
  Age: 74 Year
  Sex: Male

DRUGS (8)
  1. ZEMPLAR CAPSULES 2MCG [Suspect]
     Indication: BLOOD CALCIUM ABNORMAL
     Route: 048
     Dates: start: 20070912
  2. ZEMPLAR CAPSULES 2MCG [Suspect]
     Indication: BLOOD PHOSPHORUS ABNORMAL
     Route: 048
     Dates: start: 20070201, end: 20070912
  3. QUINAPRIL HCL [Concomitant]
     Indication: DRUG USE FOR UNKNOWN INDICATION
  4. DOXAZOSIN MESYLATE [Concomitant]
     Indication: DRUG USE FOR UNKNOWN INDICATION
  5. EPOETIN ALFA [Concomitant]
     Indication: DRUG USE FOR UNKNOWN INDICATION
  6. SEVELAMER [Concomitant]
     Indication: DRUG USE FOR UNKNOWN INDICATION
     Dates: start: 20070901
  7. CINACALCET HYDROCHLORIDE [Concomitant]
     Indication: DRUG USE FOR UNKNOWN INDICATION
  8. CHROMATIN [Concomitant]
     Indication: DRUG USE FOR UNKNOWN INDICATION

REACTIONS (2)
  - EYE IRRITATION [None]
  - OCULAR HYPERAEMIA [None]
